FAERS Safety Report 11700713 (Version 1)
Quarter: 2015Q4

REPORT INFORMATION
  Report Type: Spontaneous
  Country: US (occurrence: None)
  Receive Date: 20151104
  Receipt Date: 20151104
  Transmission Date: 20160304
  Serious: Yes (Hospitalization)
  Sender: FDA-Public Use
  Company Number: None

PATIENT
  Age: 96 Year
  Sex: Female
  Weight: 54.43 kg

DRUGS (4)
  1. ATENOLOL 25 MG [Suspect]
     Active Substance: ATENOLOL
     Route: 048
  2. BENAZEPRIL [Suspect]
     Active Substance: BENAZEPRIL HYDROCHLORIDE
     Route: 048
  3. PRADAXA [Suspect]
     Active Substance: DABIGATRAN ETEXILATE MESYLATE
     Indication: ATRIAL FIBRILLATION
     Route: 048
  4. AMLODIPINE [Suspect]
     Active Substance: AMLODIPINE BESYLATE
     Route: 048

REACTIONS (8)
  - Hypotension [None]
  - Orthostatic hypotension [None]
  - Overdose [None]
  - Haemoglobin decreased [None]
  - Internal haemorrhage [None]
  - Fatigue [None]
  - Dizziness [None]
  - Epistaxis [None]

NARRATIVE: CASE EVENT DATE: 20150809
